FAERS Safety Report 12356486 (Version 1)
Quarter: 2016Q2

REPORT INFORMATION
  Report Type: Spontaneous
  Country: US (occurrence: US)
  Receive Date: 20160511
  Receipt Date: 20160511
  Transmission Date: 20160815
  Serious: Yes (Hospitalization)
  Sender: FDA-Public Use
  Company Number: US-B.I. PHARMACEUTICALS,INC./RIDGEFIELD-2016-BI-28612BP

PATIENT
  Age: 51 Year
  Sex: Male
  Weight: 108.86 kg

DRUGS (2)
  1. COMBIVENT [Suspect]
     Active Substance: ALBUTEROL SULFATE\IPRATROPIUM BROMIDE
     Dosage: STRENGTH: 20 MCG/100 MCG; DOSE PER APPLICATION AND DAILY DOSE: 1-2 INHALATIONS
     Route: 055
  2. COMBIVENT [Suspect]
     Active Substance: ALBUTEROL SULFATE\IPRATROPIUM BROMIDE
     Indication: ASTHMA
     Dosage: 4 ANZ
     Route: 055
     Dates: start: 201506

REACTIONS (10)
  - Productive cough [Unknown]
  - Asthma [Unknown]
  - Gait disturbance [Recovered/Resolved]
  - Internal haemorrhage [Unknown]
  - Bronchitis [Not Recovered/Not Resolved]
  - Contusion [Unknown]
  - Sneezing [Unknown]
  - Off label use [Unknown]
  - Injury [Recovered/Resolved]
  - Musculoskeletal chest pain [Unknown]

NARRATIVE: CASE EVENT DATE: 201506
